FAERS Safety Report 16223818 (Version 1)
Quarter: 2019Q2

REPORT INFORMATION
  Report Type: Spontaneous
  Country: US (occurrence: US)
  Receive Date: 20190420
  Receipt Date: 20190420
  Transmission Date: 20190711
  Serious: Yes (Life-Threatening, Hospitalization, Other)
  Sender: FDA-Public Use
  Company Number: None

PATIENT
  Age: 30 Year
  Sex: Female
  Weight: 107.05 kg

DRUGS (1)
  1. MIRENA [Suspect]
     Active Substance: LEVONORGESTREL

REACTIONS (5)
  - Uterine dilation and curettage [None]
  - Abortion spontaneous [None]
  - Pregnancy with contraceptive device [None]
  - Uterine haemorrhage [None]
  - Device dislocation [None]

NARRATIVE: CASE EVENT DATE: 20190318
